FAERS Safety Report 15446354 (Version 1)
Quarter: 2018Q3

REPORT INFORMATION
  Report Type: Report from Study
  Country: CA (occurrence: CA)
  Receive Date: 20180928
  Receipt Date: 20180928
  Transmission Date: 20181010
  Serious: Yes (Other)
  Sender: FDA-Public Use
  Company Number: CA-PFIZER INC-2018392035

PATIENT
  Age: 76 Year
  Sex: Male

DRUGS (9)
  1. IDELALISIB [Suspect]
     Active Substance: IDELALISIB
     Dosage: 150 MG, UNK
     Route: 048
  2. ADVIL [Suspect]
     Active Substance: IBUPROFEN
     Dosage: UNK
     Route: 065
  3. IDELALISIB [Suspect]
     Active Substance: IDELALISIB
     Indication: B-CELL LYMPHOMA
     Dosage: 150 MG, 2X/DAY
     Route: 048
  4. ZYDELIG [Suspect]
     Active Substance: IDELALISIB
     Dosage: 150 MG, UNK
     Route: 065
  5. IDELALISIB [Suspect]
     Active Substance: IDELALISIB
     Dosage: 150 MG, 2X/DAY
     Route: 048
  6. IDELALISIB [Suspect]
     Active Substance: IDELALISIB
     Dosage: 100 MG, 2X/DAY
     Route: 048
  7. CELEBREX [Suspect]
     Active Substance: CELECOXIB
     Dosage: UNK
  8. IDELALISIB [Suspect]
     Active Substance: IDELALISIB
     Dosage: 150 MG, 2X/DAY
     Route: 048
  9. IDELALISIB [Suspect]
     Active Substance: IDELALISIB
     Dosage: 150 MG, UNK
     Route: 048

REACTIONS (16)
  - Ototoxicity [Recovered/Resolved]
  - Drug hypersensitivity [Recovered/Resolved]
  - Blood urine present [Recovered/Resolved]
  - Middle insomnia [Recovered/Resolved]
  - Oral infection [Recovered/Resolved]
  - Abdominal pain upper [Recovered/Resolved]
  - Accident [Recovered/Resolved]
  - Fall [Recovered/Resolved]
  - Thrombosis [Recovered/Resolved]
  - Intestinal obstruction [Recovered/Resolved]
  - Nasopharyngitis [Recovered/Resolved]
  - Rhinitis [Recovered/Resolved]
  - Haemorrhage [Recovered/Resolved]
  - Rib fracture [Recovered/Resolved]
  - Abdominal distension [Recovered/Resolved]
  - Dizziness [Recovered/Resolved]
